FAERS Safety Report 12197791 (Version 1)
Quarter: 2016Q1

REPORT INFORMATION
  Report Type: Spontaneous
  Country: US (occurrence: None)
  Receive Date: 20160321
  Receipt Date: 20160321
  Transmission Date: 20160526
  Serious: Yes (Other)
  Sender: FDA-Public Use
  Company Number: None

PATIENT
  Age: 75 Year
  Sex: Female
  Weight: 66.23 kg

DRUGS (1)
  1. METRONIDAZOLE/DILTIAZEM/LIDOCAINE/BUPIVACAINE/ALOE 10%/2%?15%/1%/0.5GM [Suspect]
     Active Substance: ALOE\BUPIVACAINE\DILTIAZEM\LIDOCAINE\METRONIDAZOLE
     Indication: HAEMORRHOIDS
     Dates: start: 20151210

REACTIONS (4)
  - Palpitations [None]
  - Malaise [None]
  - Dizziness [None]
  - Therapy cessation [None]
